FAERS Safety Report 6245654-2 (Version None)
Quarter: 2009Q2

REPORT INFORMATION
  Report Type: 
  Country: None (occurrence: None)
  Receive Date: 20090619
  Receipt Date: 20090304
  Transmission Date: 20091009
  Serious: No
  Sender: FDA-Public Use
  Company Number: SPV1-2009-00368

PATIENT
  Age: 13 Year
  Sex: Male

DRUGS (1)
  1. VYVANSE [Suspect]
     Dosage: 90 MG, 1X/DAY:QD, ORAL ; 90 MG, 2X/DAY:BID, ORAL
     Route: 048
     Dates: start: 20090304, end: 20090304

REACTIONS (4)
  - CHEST PAIN [None]
  - INAPPROPRIATE SCHEDULE OF DRUG ADMINISTRATION [None]
  - OFF LABEL USE [None]
  - OVERDOSE [None]
